FAERS Safety Report 9700673 (Version 1)
Quarter: 2013Q4

REPORT INFORMATION
  Report Type: Spontaneous
  Country: VE (occurrence: VE)
  Receive Date: 20131121
  Receipt Date: 20131121
  Transmission Date: 20140711
  Serious: Yes (Hospitalization)
  Sender: FDA-Public Use
  Company Number: PHHY2013VE131679

PATIENT
  Age: 64 Year
  Sex: Female

DRUGS (4)
  1. FORADIL [Suspect]
     Indication: PULMONARY FIBROSIS
     Dosage: 12 UG, TWICE DAILY (SINCE 3 MONTHS AGO)
     Dates: end: 20131109
  2. MIFLONIDE [Suspect]
     Indication: PULMONARY FIBROSIS
     Dosage: 200 UG, TWICE DAILY
     Dates: end: 20131109
  3. SPIRIVA [Concomitant]
     Dosage: UNK
  4. CALCORT [Concomitant]
     Dosage: UNK

REACTIONS (1)
  - Respiratory tract infection [Recovered/Resolved]
